FAERS Safety Report 6153523-1 (Version None)
Quarter: 2009Q2

REPORT INFORMATION
  Report Type: 
  Country: None (occurrence: None)
  Receive Date: 20090413
  Receipt Date: 20090402
  Transmission Date: 20091009
  Serious: Yes (Hospitalization, Other)
  Sender: FDA-Public Use
  Company Number: PHHY2008AT06940

PATIENT
  Sex: Female
  Weight: 60 kg

DRUGS (3)
  1. EXELON [Suspect]
     Indication: DEMENTIA ALZHEIMER'S TYPE
     Dosage: 9.5 MG / 24 H
     Route: 062
     Dates: start: 20080227, end: 20080313
  2. EXELON [Suspect]
     Dosage: 4.6 MG/24 H
     Dates: start: 20080124
  3. FOLSAN [Concomitant]
     Dosage: 5 MG/DAY
     Route: 048
     Dates: start: 20080227

REACTIONS (4)
  - CONFUSIONAL STATE [None]
  - DEHYDRATION [None]
  - DISORIENTATION [None]
  - SKIN IRRITATION [None]
